FAERS Safety Report 4333803-2 (Version None)
Quarter: 2004Q2

REPORT INFORMATION
  Report Type: 
  Country: None (occurrence: None)
  Receive Date: 20040402
  Receipt Date: 20040324
  Transmission Date: 20050107
  Serious: Yes (Death)
  Sender: FDA-Public Use
  Company Number: JP-JNJFOC-20040301993

PATIENT
  Age: 60 Year
  Sex: Male
  Weight: 55 kg

DRUGS (6)
  1. RISPERDAL [Suspect]
     Indication: SCHIZOPHRENIA
     Dosage: 4 MG, IN 1 DAY, ORAL
     Route: 048
     Dates: start: 20030310, end: 20040307
  2. BIPERIDEN HYDROCHLORIDE TAB [Concomitant]
  3. FLUNITRAZEPAM (FLUNITRAZEPAM) UNSPECIFIED [Concomitant]
  4. ESTAZOLAM (ESTRAZOLAM) UNSPECIFIED [Concomitant]
  5. PROMETHAZINE HYDROCHLORIDE (PROMETHAZINE HYDROCHLORIDE) UNSPECIFIED [Concomitant]
  6. CHLORPROMAZINE TANNATE (CHLORPROMAZINE) UNSPECIFIED [Concomitant]

REACTIONS (8)
  - BACTERIAL INFECTION [None]
  - BLOOD GLUCOSE INCREASED [None]
  - CARDIAC FAILURE [None]
  - DEPRESSED LEVEL OF CONSCIOUSNESS [None]
  - DIARRHOEA [None]
  - SEPTIC SHOCK [None]
  - URINARY OCCULT BLOOD POSITIVE [None]
  - VOMITING [None]
